FAERS Safety Report 18877328 (Version 2)
Quarter: 2021Q1

REPORT INFORMATION
  Report Type: Spontaneous
  Country: BR (occurrence: BR)
  Receive Date: 20210211
  Receipt Date: 20210305
  Transmission Date: 20210420
  Serious: Yes (Death, Life-Threatening, Hospitalization, Other)
  Sender: FDA-Public Use
  Company Number: BR-JNJFOC-20210218414

PATIENT
  Age: 75 Year
  Sex: Male
  Weight: 45 kg

DRUGS (9)
  1. MORPHINE [Suspect]
     Active Substance: MORPHINE
     Dosage: UNK
     Route: 065
     Dates: start: 2020
  2. METAMIZOLE [Concomitant]
     Active Substance: METAMIZOLE
     Indication: PAIN
     Dosage: 1000 MILLIGRAM, EVERY 6 HRS
     Route: 042
     Dates: start: 2020
  3. METOCLOPRAMIDE. [Concomitant]
     Active Substance: METOCLOPRAMIDE
     Dosage: 10 MILLIGRAM, EVERY 8 HRS
     Route: 042
  4. MORPHINE [Suspect]
     Active Substance: MORPHINE
     Dosage: 3 MILLIGRAM
     Route: 065
     Dates: start: 2020
  5. OMEPRAZOLE. [Concomitant]
     Active Substance: OMEPRAZOLE
     Dosage: 40 MILLIGRAM, 1/DAY
     Route: 048
  6. PARACETAMOL [Concomitant]
     Active Substance: ACETAMINOPHEN
     Indication: PAIN
     Dosage: 500 MILLIGRAM, EVERY 4 HRS
     Route: 065
  7. TRAMADOL HYDROCHLORIDE. [Suspect]
     Active Substance: TRAMADOL HYDROCHLORIDE
     Indication: PAIN
     Dosage: 100 MILLIGRAM, EVERY 8 HRS
     Route: 042
  8. TRAMADOL HYDROCHLORIDE. [Suspect]
     Active Substance: TRAMADOL HYDROCHLORIDE
     Indication: PAIN
     Dosage: 100 MILLIGRAM, EVERY 8 HRS
     Route: 048
  9. MORPHINE [Suspect]
     Active Substance: MORPHINE
     Indication: PAIN
     Dosage: 5 MILLIGRAM, EVERY 4 HRS
     Route: 065
     Dates: start: 2020

REACTIONS (11)
  - Squamous cell carcinoma of lung [Fatal]
  - Respiratory failure [Fatal]
  - Nausea [Unknown]
  - Toxicity to various agents [Fatal]
  - Impaired gastric emptying [Unknown]
  - Abdominal discomfort [Unknown]
  - Metabolic acidosis [Unknown]
  - Vomiting [Unknown]
  - Gastrointestinal motility disorder [Not Recovered/Not Resolved]
  - Constipation [Not Recovered/Not Resolved]
  - Intentional product misuse [Unknown]

NARRATIVE: CASE EVENT DATE: 2020
